FAERS Safety Report 7788860-8 (Version None)
Quarter: 2011Q3

REPORT INFORMATION
  Report Type: 
  Country: None (occurrence: None)
  Receive Date: 20110928
  Receipt Date: 20110915
  Transmission Date: 20111222
  Serious: Yes (Hospitalization, Disabling, Other)
  Sender: FDA-Public Use
  Company Number: AUR-APL-2011-04857

PATIENT
  Age: 63 Year
  Sex: Female
  Weight: 35 kg

DRUGS (8)
  1. RABEPRAZOLE SODIUM [Concomitant]
  2. DOXAZOSIN MESYLATE [Concomitant]
  3. ALENDRONATE SODIUM [Suspect]
     Indication: OSTEOPOROSIS
     Dosage: (70 MG, 1 IN 1 WK), ORAL
     Route: 048
     Dates: start: 20081217, end: 20110804
  4. CALCICHEW-D3 (LOKOVIT CA) [Concomitant]
  5. SALMETEROL/FLUTICASONE (SERETIDE /01420901/) [Concomitant]
  6. AMLODIPINE [Concomitant]
  7. RAMIPRIL [Concomitant]
  8. TIOTROPIUM BROMIDE (TIOTROPIUM BROMIDE) [Concomitant]

REACTIONS (4)
  - ORAL DISCHARGE [None]
  - OSTEONECROSIS OF JAW [None]
  - JAW FRACTURE [None]
  - PATHOLOGICAL FRACTURE [None]
